FAERS Safety Report 10873846 (Version 1)
Quarter: 2015Q1

REPORT INFORMATION
  Report Type: Spontaneous
  Country: CA (occurrence: None)
  Receive Date: 20150224
  Receipt Date: 20150224
  Transmission Date: 20150721
  Serious: Yes (Hospitalization, Other)
  Sender: FDA-Public Use
  Company Number: CA-ZYDUS-006805

PATIENT
  Age: 61 Year
  Sex: Male

DRUGS (6)
  1. ESCITALOPRAM [Concomitant]
     Active Substance: ESCITALOPRAM OXALATE
  2. TRAZODONE [Concomitant]
     Active Substance: TRAZODONE HYDROCHLORIDE
  3. BUPROPION (BUPROPION) [Suspect]
     Active Substance: BUPROPION
  4. MIRTAZAPINE. [Concomitant]
     Active Substance: MIRTAZAPINE
  5. VENLAFAXINE [Concomitant]
     Active Substance: VENLAFAXINE HYDROCHLORIDE
  6. LITHIUM [Suspect]
     Active Substance: LITHIUM CARBONATE
     Dosage: 900.00 MG-1.0DAYS

REACTIONS (3)
  - Urinary retention [None]
  - Balance disorder [None]
  - Tremor [None]
